FAERS Safety Report 5410859-7 (Version None)
Quarter: 2007Q3

REPORT INFORMATION
  Report Type: 
  Country: None (occurrence: None)
  Receive Date: 20070810
  Receipt Date: 20070731
  Transmission Date: 20080115
  Serious: Yes (Other)
  Sender: FDA-Public Use
  Company Number: PHEH2007US10546

PATIENT
  Age: 59 Year
  Sex: Male

DRUGS (5)
  1. ZELNORM [Suspect]
     Indication: IMPAIRED GASTRIC EMPTYING
     Dosage: 1/2 TABLET, BID
     Route: 048
     Dates: start: 20041011, end: 20070301
  2. DILTIAZEM [Concomitant]
     Indication: HYPERTENSION
     Dosage: 120 MG, UNK
     Dates: start: 20000101
  3. GLUCOPHAGE [Concomitant]
     Indication: DIABETES MELLITUS
     Dates: start: 20000101
  4. PREVACID [Concomitant]
     Dosage: 30 MG, UNK
  5. PRILOSEC [Concomitant]

REACTIONS (19)
  - ABDOMINAL PAIN UPPER [None]
  - ARTERIOSCLEROSIS [None]
  - BLOOD CHOLESTEROL INCREASED [None]
  - BLOOD CREATINE PHOSPHOKINASE INCREASED [None]
  - CARCINOID TUMOUR [None]
  - CERVICOBRACHIAL SYNDROME [None]
  - CHEST PAIN [None]
  - CONSTIPATION [None]
  - DIZZINESS [None]
  - GASTROOESOPHAGEAL REFLUX DISEASE [None]
  - HEART RATE INCREASED [None]
  - HYPERTENSION [None]
  - HYPOAESTHESIA [None]
  - INJURY [None]
  - NECK PAIN [None]
  - OSTEOARTHRITIS [None]
  - PAIN IN EXTREMITY [None]
  - PERIPHERAL ARTERY ANEURYSM [None]
  - ROAD TRAFFIC ACCIDENT [None]
